FAERS Safety Report 18347442 (Version 1)
Quarter: 2020Q4

REPORT INFORMATION
  Report Type: Spontaneous
  Country: CN (occurrence: CN)
  Receive Date: 20201006
  Receipt Date: 20201006
  Transmission Date: 20210114
  Serious: Yes (Other)
  Sender: FDA-Public Use
  Company Number: CN-BAXTER-2020BAX019935

PATIENT
  Age: 66 Year
  Sex: Male
  Weight: 68 kg

DRUGS (5)
  1. HOLOXAN [Suspect]
     Active Substance: IFOSFAMIDE
     Indication: BLADDER CANCER
     Dosage: DAY 1 TO 5, Q3W
     Route: 041
     Dates: start: 20200909, end: 20200913
  2. AIDASHENG [Suspect]
     Active Substance: EPIRUBICIN HYDROCHLORIDE
     Indication: LEIOMYOSARCOMA
  3. UROMITEXAN [Suspect]
     Active Substance: MESNA
     Indication: SYMPTOMATIC TREATMENT
     Dosage: 0 HR, 4 HR AND 8 HR, DAY 1 TO 5, Q3W
     Route: 041
     Dates: start: 20200909, end: 20200913
  4. HOLOXAN [Suspect]
     Active Substance: IFOSFAMIDE
     Indication: LEIOMYOSARCOMA
  5. AIDASHENG [Suspect]
     Active Substance: EPIRUBICIN HYDROCHLORIDE
     Indication: BLADDER CANCER
     Dosage: DAY 1, Q3W
     Route: 041
     Dates: start: 20200909, end: 20200909

REACTIONS (1)
  - Myelosuppression [Not Recovered/Not Resolved]

NARRATIVE: CASE EVENT DATE: 20200914
